FAERS Safety Report 19383557 (Version 2)
Quarter: 2021Q2

REPORT INFORMATION
  Report Type: Spontaneous
  Country: BE (occurrence: BE)
  Receive Date: 20210608
  Receipt Date: 20210622
  Transmission Date: 20210717
  Serious: Yes (Hospitalization, Other)
  Sender: FDA-Public Use
  Company Number: BE-MACLEODS PHARMACEUTICALS US LTD-MAC2021031345

PATIENT

DRUGS (4)
  1. FLUMAZENIL. [Suspect]
     Active Substance: FLUMAZENIL
     Indication: ALTERED STATE OF CONSCIOUSNESS
     Dosage: 0.5 MILLIGRAM
     Route: 042
  2. BIPERIDENE [Suspect]
     Active Substance: BIPERIDEN
     Indication: PRODUCT USED FOR UNKNOWN INDICATION
     Dosage: 5 MILLIGRAM, SLOWLY
     Route: 042
  3. OLANZAPINE. [Suspect]
     Active Substance: OLANZAPINE
     Indication: SCHIZOPHRENIA
     Dosage: 405 MILLIGRAM, DEPOT INJECTION, 3RD ADMINISTRATION
     Route: 030
  4. DIAZEPAM. [Suspect]
     Active Substance: DIAZEPAM
     Indication: PRODUCT USED FOR UNKNOWN INDICATION
     Dosage: 10 MILLIGRAM
     Route: 065

REACTIONS (10)
  - Altered state of consciousness [Recovering/Resolving]
  - Extensor plantar response [Recovering/Resolving]
  - Unresponsive to stimuli [Recovering/Resolving]
  - Somnolence [Recovering/Resolving]
  - Akathisia [Recovering/Resolving]
  - Coma [Recovering/Resolving]
  - Communication disorder [Recovering/Resolving]
  - Aggression [Recovering/Resolving]
  - Post-injection delirium sedation syndrome [Recovered/Resolved]
  - Formication [Recovering/Resolving]
